FAERS Safety Report 11649679 (Version 1)
Quarter: 2015Q4

REPORT INFORMATION
  Report Type: Spontaneous
  Country: US (occurrence: US)
  Receive Date: 20151021
  Receipt Date: 20151021
  Transmission Date: 20160304
  Serious: No
  Sender: FDA-Public Use
  Company Number: US-TARO-2015TAR00749

PATIENT
  Age: 73 Year
  Sex: Female
  Weight: 99.77 kg

DRUGS (6)
  1. LORAZEPAM. [Concomitant]
     Active Substance: LORAZEPAM
     Dosage: UNK, 2X/DAY
  2. LOTREL [Concomitant]
     Active Substance: AMLODIPINE BESYLATE\BENAZEPRIL HYDROCHLORIDE
     Dosage: UNK, 1X/DAY
  3. NEXIUM [Concomitant]
     Active Substance: ESOMEPRAZOLE MAGNESIUM
     Dosage: UNK, AS NEEDED
  4. TOPICORT [Suspect]
     Active Substance: DESOXIMETASONE
     Indication: SKIN ULCER
     Dosage: SMALL AMOUNT, 2X/DAY
     Route: 061
     Dates: start: 201507
  5. TOPICORT [Suspect]
     Active Substance: DESOXIMETASONE
     Dosage: UNK, ONCE
     Dates: start: 20150803, end: 20150803
  6. TOPICORT [Suspect]
     Active Substance: DESOXIMETASONE
     Dosage: UNK, ONCE
     Dates: start: 20150805, end: 20150805

REACTIONS (3)
  - Dyspnoea [Recovered/Resolved]
  - Throat irritation [Recovered/Resolved]
  - Exposure via inhalation [Recovered/Resolved]

NARRATIVE: CASE EVENT DATE: 20150803
